FAERS Safety Report 11663104 (Version 1)
Quarter: 2015Q4

REPORT INFORMATION
  Report Type: Spontaneous
  Country: US (occurrence: US)
  Receive Date: 20151027
  Receipt Date: 20151027
  Transmission Date: 20160304
  Serious: No
  Sender: FDA-Public Use
  Company Number: US-MEDA-2010120011

PATIENT
  Age: 54 Year
  Sex: Female

DRUGS (4)
  1. VICODIN [Concomitant]
     Active Substance: ACETAMINOPHEN\HYDROCODONE BITARTRATE
     Indication: BREAKTHROUGH PAIN
     Dosage: 7.5 MG/500 MG
     Route: 048
  2. EMBEDA [Concomitant]
     Active Substance: MORPHINE SULFATE\NALTREXONE HYDROCHLORIDE
     Indication: PAIN
     Dosage: 60MG/2.4 MG
     Route: 048
  3. STEROID [Suspect]
     Active Substance: UNSPECIFIED INGREDIENT
     Route: 008
     Dates: start: 20101104, end: 20101112
  4. ONSOLIS [Suspect]
     Active Substance: FENTANYL CITRATE
     Indication: CANCER PAIN
     Dosage: UP TO 4-200 MCG FILMS/DOSE
     Route: 002
     Dates: start: 20101108, end: 20101115

REACTIONS (4)
  - Psychomotor hyperactivity [Recovered/Resolved]
  - Muscle spasms [Recovering/Resolving]
  - Insomnia [Recovered/Resolved]
  - Restlessness [Recovered/Resolved]

NARRATIVE: CASE EVENT DATE: 201011
